FAERS Safety Report 4338433-4 (Version None)
Quarter: 2004Q2

REPORT INFORMATION
  Report Type: 
  Country: None (occurrence: None)
  Receive Date: 20040409
  Receipt Date: 20040329
  Transmission Date: 20050107
  Serious: Yes (Hospitalization, Disabling)
  Sender: FDA-Public Use
  Company Number: 03P-008-0234784-01

PATIENT
  Age: 49 Year
  Sex: Male

DRUGS (5)
  1. NORVIR [Suspect]
     Indication: SYSTEMIC ANTIFUNGAL TREATMENT
     Dosage: PER ORAL
     Route: 048
     Dates: start: 20030403, end: 20040223
  2. TIPRANAVIR [Concomitant]
  3. DIDANOSINE [Concomitant]
  4. ENFURVITIDE [Concomitant]
  5. LAMIVUDINE [Concomitant]

REACTIONS (3)
  - LYMPHADENOPATHY [None]
  - NEOPLASM RECURRENCE [None]
  - PULMONARY MASS [None]
